FAERS Safety Report 4546638-2 (Version None)
Quarter: 2005Q1

REPORT INFORMATION
  Report Type: 
  Country: None (occurrence: None)
  Receive Date: 20050105
  Receipt Date: 20041221
  Transmission Date: 20050727
  Serious: Yes (Death, Hospitalization)
  Sender: FDA-Public Use
  Company Number: 2004AL000636

PATIENT
  Age: 22 Year
  Sex: Male

DRUGS (2)
  1. ACETAMINOPHEN [Suspect]
     Dosage: PO
     Route: 048
  2. ACETAMINOPHEN [Suspect]
     Dosage: PO
     Route: 048

REACTIONS (7)
  - COAGULOPATHY [None]
  - COMPLETED SUICIDE [None]
  - ENCEPHALOPATHY [None]
  - HAEMODIALYSIS [None]
  - HEPATORENAL FAILURE [None]
  - INTERNATIONAL NORMALISED RATIO INCREASED [None]
  - OVERDOSE [None]
